FAERS Safety Report 4369102-2 (Version None)
Quarter: 2004Q2

REPORT INFORMATION
  Report Type: 
  Country: None (occurrence: None)
  Receive Date: 20040527
  Receipt Date: 20040514
  Transmission Date: 20050107
  Serious: Yes (Death)
  Sender: FDA-Public Use
  Company Number: 2004032706

PATIENT
  Age: 35 Year
  Sex: Female

DRUGS (6)
  1. GEODON [Suspect]
     Indication: ILL-DEFINED DISORDER
     Dosage: 240 MG (80 MG, 1 IN 1 D)
  2. ALL OTHER NO-THERAPEUTIC PRODUCTS (ALL OTHER NON-THERAPEUTIC PRODUCTS) [Suspect]
     Indication: ILL-DEFINED DISORDER
  3. LORAZEPAM [Suspect]
     Indication: ILL-DEFINED DISORDER
  4. ESCITALOPRAM (ESCITALOPRAM) [Suspect]
     Indication: ILL-DEFINED DISORDER
  5. TOPIRAMATE [Concomitant]
  6. DIAZEPAM [Concomitant]

REACTIONS (1)
  - DEATH [None]
